FAERS Safety Report 7941045-4 (Version None)
Quarter: 2011Q4

REPORT INFORMATION
  Report Type: 
  Country: None (occurrence: None)
  Receive Date: 20111114
  Receipt Date: 20110815
  Transmission Date: 20120403
  Serious: No
  Sender: FDA-Public Use
  Company Number: 2011S1000530

PATIENT

DRUGS (2)
  1. CUBICIN [Suspect]
     Indication: STAPHYLOCOCCAL BACTERAEMIA
  2. CUBICIN [Suspect]
     Indication: OSTEOMYELITIS

REACTIONS (2)
  - STAPHYLOCOCCAL BACTERAEMIA [None]
  - DRUG INEFFECTIVE [None]
